FAERS Safety Report 9407199 (Version 1)
Quarter: 2013Q3

REPORT INFORMATION
  Report Type: Spontaneous
  Country: IT (occurrence: IT)
  Receive Date: 20130718
  Receipt Date: 20130718
  Transmission Date: 20140515
  Serious: Yes (Death, Other)
  Sender: FDA-Public Use
  Company Number: IT-BAXTER-2013BAX027109

PATIENT
  Sex: 0

DRUGS (4)
  1. ENDOXAN BAXTER [Suspect]
     Indication: HAEMATOLOGICAL MALIGNANCY
     Dosage: HIGH DOSE
     Route: 065
  2. FLUDARABINE [Suspect]
     Indication: HAEMATOLOGICAL MALIGNANCY
     Route: 065
  3. TACROLIMUS [Suspect]
     Indication: HAEMATOLOGICAL MALIGNANCY
     Route: 065
  4. MYCOPHENOLATE MOFETIL [Suspect]
     Indication: HAEMATOLOGICAL MALIGNANCY
     Route: 065

REACTIONS (2)
  - Infection [Fatal]
  - Cytomegalovirus infection [Not Recovered/Not Resolved]
